FAERS Safety Report 10299288 (Version 2)
Quarter: 2014Q3

REPORT INFORMATION
  Report Type: Spontaneous
  Country: CL (occurrence: CL)
  Receive Date: 20140711
  Receipt Date: 20140729
  Transmission Date: 20150326
  Serious: Yes (Other)
  Sender: FDA-Public Use
  Company Number: PHHY2014CL085544

PATIENT
  Sex: Male

DRUGS (1)
  1. RASILEZ D [Suspect]
     Active Substance: ALISKIREN\HYDROCHLOROTHIAZIDE
     Dosage: 300/12.5MG, DAILY
     Route: 048
     Dates: start: 2010

REACTIONS (4)
  - Thrombosis [Recovering/Resolving]
  - Gait disturbance [Unknown]
  - Speech disorder [Unknown]
  - Cerebral haemorrhage [Recovered/Resolved]

NARRATIVE: CASE EVENT DATE: 2010
